FAERS Safety Report 7173205-7 (Version None)
Quarter: 2010Q4

REPORT INFORMATION
  Report Type: 
  Country: None (occurrence: None)
  Receive Date: 20101219
  Receipt Date: 20100223
  Transmission Date: 20110411
  Serious: No
  Sender: FDA-Public Use
  Company Number: US-AMGEN-KDL394751

PATIENT

DRUGS (20)
  1. ENBREL [Suspect]
     Indication: PRODUCT USED FOR UNKNOWN INDICATION
     Dosage: 50 MG, QWK
     Route: 058
  2. ALPRAZOLAM [Concomitant]
     Dosage: 1 MG, UNK
  3. CELECOXIB [Concomitant]
     Dosage: 50 MG, UNK
  4. VIACTIVE [Concomitant]
  5. METHOTREXATE [Concomitant]
     Dosage: 2.5 MG, UNK
  6. WARFARIN SODIUM [Concomitant]
     Dosage: 5 MG, UNK
  7. GABAPENTIN [Concomitant]
     Dosage: 100 MG, UNK
  8. LEVOTHYROXINE SODIUM [Concomitant]
     Dosage: 112 A?G, UNK
  9. LOVASTATIN [Concomitant]
     Dosage: 20 MG, UNK
  10. LISINOPRIL [Concomitant]
     Dosage: 5 MG, UNK
  11. FOLIC ACID [Concomitant]
     Dosage: 1 MG, UNK
  12. HYDROCHLOROTHIAZIDE [Concomitant]
     Dosage: 25 MG, UNK
  13. OMEPRAZOLE [Concomitant]
     Dosage: 40 MG, UNK
  14. VERAPAMIL [Concomitant]
     Dosage: 180 MG, UNK
  15. ESCITALOPRAM [Concomitant]
     Dosage: 10 MG, UNK
  16. CALCIUM WITH VITAMIN D [Concomitant]
     Dosage: UNK UNK, UNK
  17. MULTI-VITAMINS [Concomitant]
     Dosage: UNK UNK, UNK
  18. POTASSIUM [Concomitant]
     Dosage: 25 MEQ, UNK
  19. DEXTROPROPOXYPHENE NAPSILATE W/ ACETAMINOPHEN [Concomitant]
     Dosage: UNK UNK, UNK
  20. ASPIRIN [Concomitant]
     Dosage: 81 MG, UNK

REACTIONS (4)
  - INJECTION SITE ERYTHEMA [None]
  - INJECTION SITE INFLAMMATION [None]
  - INJECTION SITE PRURITUS [None]
  - INJECTION SITE REACTION [None]
